FAERS Safety Report 20855837 (Version 1)
Quarter: 2022Q2

REPORT INFORMATION
  Report Type: Spontaneous
  Country: CN (occurrence: CN)
  Receive Date: 20220520
  Receipt Date: 20220520
  Transmission Date: 20220721
  Serious: Yes (Other)
  Sender: FDA-Public Use
  Company Number: CN-009507513-2205CHN003635

PATIENT
  Sex: Male

DRUGS (17)
  1. IMIPENEM AND CILASTATIN [Suspect]
     Active Substance: CILASTATIN SODIUM\IMIPENEM
     Indication: Antibiotic therapy
     Dosage: UNK
     Dates: start: 20181122, end: 20181128
  2. POSACONAZOLE [Suspect]
     Active Substance: POSACONAZOLE
     Indication: Antibiotic therapy
     Dosage: UNK
     Dates: start: 20181124, end: 20181128
  3. VANCOMYCIN HYDROCHLORIDE [Suspect]
     Active Substance: VANCOMYCIN HYDROCHLORIDE
     Indication: Antibiotic therapy
     Dosage: UNK
     Dates: start: 20181122, end: 20181128
  4. VORICONAZOLE [Suspect]
     Active Substance: VORICONAZOLE
     Indication: Antibiotic therapy
     Dosage: UNK
     Route: 042
     Dates: start: 20181122, end: 20181128
  5. AMPHOTERICIN B [Suspect]
     Active Substance: AMPHOTERICIN B
     Indication: Antibiotic therapy
     Dosage: UNK
     Dates: start: 20181123, end: 20181128
  6. PIPERACILLIN AND TAZOBACTAM [Suspect]
     Active Substance: PIPERACILLIN SODIUM\TAZOBACTAM SODIUM
     Indication: Antibiotic therapy
     Dosage: UNK
     Dates: start: 20181124, end: 20181128
  7. NATAMYCIN [Suspect]
     Active Substance: NATAMYCIN
     Indication: Antibiotic therapy
     Dosage: UNK
     Dates: start: 20181126, end: 20181128
  8. CASPOFUNGIN ACETATE [Concomitant]
     Active Substance: CASPOFUNGIN ACETATE
     Indication: Anti-infective therapy
     Dosage: UNK
     Dates: start: 20181121
  9. MEROPENEM [Concomitant]
     Active Substance: MEROPENEM
     Indication: Anti-infective therapy
     Dosage: UNK
     Dates: start: 20181121
  10. VINCRISTINE [Concomitant]
     Active Substance: VINCRISTINE
     Dosage: UNK
     Dates: start: 20181121
  11. PREDNISONE [Concomitant]
     Active Substance: PREDNISONE
     Dosage: UNK
     Dates: start: 20181121
  12. DECITABINE [Concomitant]
     Active Substance: DECITABINE
     Dosage: 20 MG/M^2, DAYS 1-5
     Dates: start: 20181121
  13. OMACETAXINE MEPESUCCINATE [Concomitant]
     Active Substance: OMACETAXINE MEPESUCCINATE
     Dosage: 1 MG/D, DAYS 3-16
     Dates: start: 20181121
  14. CYTARABINE [Concomitant]
     Active Substance: CYTARABINE
     Dosage: 10 MG/M^2, EVERY 12 H, DAYS 3-16
     Route: 058
     Dates: start: 20181121
  15. ACLARUBICIN [Concomitant]
     Active Substance: ACLARUBICIN
     Dosage: 10 MG/D, DAYS 3-10
     Dates: start: 20181121
  16. GRANULOCYTE COLONY-STIMULATING FACTOR NOS [Concomitant]
     Active Substance: GRANULOCYTE COLONY-STIMULATING FACTOR NOS
     Dosage: 50-600 MICRO-G/DAY, DAYS 2-9
     Dates: start: 20181121
  17. DAPTOMYCIN [Concomitant]
     Active Substance: DAPTOMYCIN
     Indication: Antibiotic therapy
     Dosage: UNK
     Dates: start: 20181123

REACTIONS (1)
  - Drug ineffective [Unknown]

NARRATIVE: CASE EVENT DATE: 20181101
